FAERS Safety Report 4621451-6 (Version None)
Quarter: 2005Q1

REPORT INFORMATION
  Report Type: 
  Country: None (occurrence: None)
  Receive Date: 20050317
  Receipt Date: 20041215
  Transmission Date: 20050727
  Serious: Yes (Other)
  Sender: FDA-Public Use
  Company Number: PHEH2004US12877

PATIENT
  Age: 69 Year
  Sex: Female

DRUGS (2)
  1. TRILEPTAL [Suspect]
     Indication: CONVULSION
     Dosage: 300 MG, BID, UNK
     Dates: start: 20031001
  2. PHENOBARBITAL [Concomitant]

REACTIONS (1)
  - HYPERTENSION [None]
